FAERS Safety Report 8191232-8 (Version None)
Quarter: 2012Q1

REPORT INFORMATION
  Report Type: 
  Country: None (occurrence: None)
  Receive Date: 20120307
  Receipt Date: 20120229
  Transmission Date: 20120608
  Serious: Yes (Hospitalization, Disabling, Other)
  Sender: FDA-Public Use
  Company Number: US-CELGENEUS-163-21880-11121746

PATIENT
  Sex: Female
  Weight: 65.83 kg

DRUGS (1)
  1. REVLIMID [Suspect]
     Dosage: 10 MILLIGRAM
     Route: 048
     Dates: start: 20111010, end: 20111206

REACTIONS (4)
  - PERICARDIAL EFFUSION [None]
  - MYELODYSPLASTIC SYNDROME [None]
  - PLEURAL EFFUSION [None]
  - THROMBOCYTOPENIA [None]
